FAERS Safety Report 5654491-9 (Version None)
Quarter: 2008Q1

REPORT INFORMATION
  Report Type: 
  Country: None (occurrence: None)
  Receive Date: 20080205
  Receipt Date: 20070507
  Transmission Date: 20080703
  Serious: Yes (Hospitalization)
  Sender: FDA-Public Use
  Company Number: MEDI-0005772

PATIENT
  Age: 48 Year
  Sex: Female

DRUGS (3)
  1. ETHYOL [Suspect]
     Dosage: SUBCUTANEOUS
     Route: 058
     Dates: start: 20070101, end: 20070101
  2. ETHYOL [Suspect]
     Dosage: SUBCUTANEOUS
     Route: 058
     Dates: start: 20070423, end: 20070101
  3. CHEMORADIATION THERAPY [Concomitant]

REACTIONS (2)
  - NAUSEA [None]
  - RASH GENERALISED [None]
